FAERS Safety Report 8338291 (Version 3)
Quarter: 2012Q4

REPORT INFORMATION
  Report Type: 
  Country: US (occurrence: US)
  Receive Date: 20120117
  Receipt Date: 20121213
  Transmission Date: 20130627
  Serious: No
  Sender: FDA-Public Use
  Company Number: US-BIOGENIDEC-2012BI001042

PATIENT
  Age: 33 Year
  Sex: Female

DRUGS (1)
  1. AVONEX [Suspect]
     Indication: MULTIPLE SCLEROSIS
     Route: 030
     Dates: start: 20120103

REACTIONS (10)
  - Gingival bleeding [Recovered/Resolved]
  - Cheilitis [Recovered/Resolved]
  - Glossitis [Recovered/Resolved]
  - Swollen tongue [Recovered/Resolved]
  - Musculoskeletal disorder [Recovered/Resolved]
  - Lip swelling [Recovered/Resolved]
  - Influenza like illness [Recovered/Resolved]
  - Alopecia [Not Recovered/Not Resolved]
  - Malaise [Recovered/Resolved]
  - Injection site pain [Recovered/Resolved]
